FAERS Safety Report 13198311 (Version 2)
Quarter: 2017Q1

REPORT INFORMATION
  Report Type: Spontaneous
  Country: US (occurrence: US)
  Receive Date: 20170208
  Receipt Date: 20170310
  Transmission Date: 20170428
  Serious: Yes (Hospitalization)
  Sender: FDA-Public Use
  Company Number: US-PFIZER INC-2017045628

PATIENT
  Age: 71 Year
  Sex: Female

DRUGS (16)
  1. REVATIO [Suspect]
     Active Substance: SILDENAFIL CITRATE
     Indication: PULMONARY HYPERTENSION
     Dosage: 20 MG, 3X/DAY
     Route: 048
  2. ALENDRONATE SODIUM. [Concomitant]
     Active Substance: ALENDRONATE SODIUM
     Dosage: 70 MG, UNK
     Route: 048
     Dates: start: 20130321
  3. LETAIRIS [Concomitant]
     Active Substance: AMBRISENTAN
     Dosage: 5 MG, 1X/DAY
     Route: 048
     Dates: start: 20111207
  4. OMEGA-3 ACIDS [Concomitant]
     Active Substance: OMEGA-3 FATTY ACIDS
     Dosage: UNK
     Dates: start: 20111203
  5. ACETAMINOPHEN W/HYDROCODONE [Concomitant]
     Active Substance: ACETAMINOPHEN\HYDROCODONE
     Dosage: UNK (ACETAMINOPHEN-325 MG /HYDROCODONE-10 MG)
     Route: 048
  6. NICOTINE. [Concomitant]
     Active Substance: NICOTINE
     Dosage: 7 MG/24HOUR
     Route: 062
  7. DOXYCYCLINE HYCLATE. [Concomitant]
     Active Substance: DOXYCYCLINE HYCLATE
     Dosage: 100 MG, UNK
     Route: 048
  8. PREDNISONE. [Concomitant]
     Active Substance: PREDNISONE
     Dosage: 10 MG, UNK
     Route: 048
  9. PROAIR HFA [Concomitant]
     Active Substance: ALBUTEROL SULFATE
     Dosage: 2 DF, AS NEEDED (108 (90 BASE) MCG/ACT/ HALE 1-2 PUFFS EVERY 4-6 HOURS AS NEEDED)
     Dates: start: 20170124
  10. ALEVE [Concomitant]
     Active Substance: NAPROXEN SODIUM
     Dosage: UNK
     Dates: start: 20140908
  11. PROVENTIL HFA /00139501/ [Concomitant]
     Dosage: UNK UNK, AS NEEDED (108 (90 BASE) MCG/ACT / INHALE 1 TO 2 PUFFS EVERY 4 TO 6 HOURS)
     Dates: start: 20121023
  12. INCRUSE ELLIPTA [Concomitant]
     Active Substance: UMECLIDINIUM BROMIDE
     Dosage: 1 DF, DAILY (62.5 MCG/INH /INHALE 1 PUFF DAILY)
     Dates: start: 20150624
  13. LORAZEPAM. [Concomitant]
     Active Substance: LORAZEPAM
     Dosage: 0.5 MG, UNK
     Route: 048
  14. VENTAVIS [Concomitant]
     Active Substance: ILOPROST
     Dosage: UNK; (20 MCG/ML INHALATION SOLUTION; INHALE 6 TIMES PER DAY)
     Dates: start: 20111227
  15. DILTIAZEM HCL [Concomitant]
     Active Substance: DILTIAZEM HYDROCHLORIDE
     Dosage: 180 MG, UNK
     Route: 048
  16. NYSTATIN. [Concomitant]
     Active Substance: NYSTATIN
     Dosage: 5 ML, 3X/DAY
     Route: 048
     Dates: start: 20170124

REACTIONS (3)
  - Condition aggravated [Unknown]
  - Pulmonary hypertension [Unknown]
  - Syncope [Unknown]
